FAERS Safety Report 8047267-9 (Version None)
Quarter: 2012Q1

REPORT INFORMATION
  Report Type: 
  Country: None (occurrence: None)
  Receive Date: 20120116
  Receipt Date: 20120111
  Transmission Date: 20120608
  Serious: No
  Sender: FDA-Public Use
  Company Number: US-BAYER-201014547NA

PATIENT
  Sex: Female

DRUGS (1)
  1. MIRENA [Suspect]
     Indication: CONTRACEPTION
     Dosage: 20 MCG/24HR, UNK
     Route: 015

REACTIONS (13)
  - HYPOMENORRHOEA [None]
  - JOINT SWELLING [None]
  - NAUSEA [None]
  - BACK PAIN [None]
  - NO ADVERSE EVENT [None]
  - VOMITING [None]
  - PALPITATIONS [None]
  - FATIGUE [None]
  - DYSMENORRHOEA [None]
  - FEELING ABNORMAL [None]
  - DIZZINESS [None]
  - MENORRHAGIA [None]
  - ABDOMINAL DISCOMFORT [None]
